FAERS Safety Report 12093597 (Version 1)
Quarter: 2016Q1

REPORT INFORMATION
  Report Type: Spontaneous
  Country: US (occurrence: None)
  Receive Date: 20160218
  Receipt Date: 20160218
  Transmission Date: 20160526
  Serious: Yes (Other)
  Sender: FDA-Public Use
  Company Number: None

PATIENT
  Age: 45 Year
  Sex: Female

DRUGS (1)
  1. HUMIRA [Suspect]
     Active Substance: ADALIMUMAB
     Indication: RHEUMATOID ARTHRITIS
     Dosage: AND STILL TAKING AS OF 2/17/2016?INJECTABLE
     Route: 058
     Dates: start: 201412, end: 20160217

REACTIONS (2)
  - Injection site urticaria [None]
  - Injection site pruritus [None]

NARRATIVE: CASE EVENT DATE: 20160212
